FAERS Safety Report 22048921 (Version 1)
Quarter: 2023Q1

REPORT INFORMATION
  Report Type: Spontaneous
  Country: US (occurrence: None)
  Receive Date: 20230228
  Receipt Date: 20230228
  Transmission Date: 20230418
  Serious: Yes (Other)
  Sender: FDA-Public Use
  Company Number: None

PATIENT
  Age: 64 Year
  Sex: Female
  Weight: 85.5 kg

DRUGS (1)
  1. CLENPIQ [Suspect]
     Active Substance: ANHYDROUS CITRIC ACID\MAGNESIUM OXIDE\SODIUM PICOSULFATE
     Indication: Colonoscopy
     Dates: start: 20230226, end: 20230226

REACTIONS (8)
  - Abdominal pain upper [None]
  - Dizziness [None]
  - Vomiting [None]
  - Tremor [None]
  - Gastrooesophageal reflux disease [None]
  - Nausea [None]
  - Hyperhidrosis [None]
  - Burning sensation [None]

NARRATIVE: CASE EVENT DATE: 20230226
